FAERS Safety Report 9679566 (Version 1)
Quarter: 2013Q4

REPORT INFORMATION
  Report Type: Spontaneous
  Country: US (occurrence: US)
  Receive Date: 20131109
  Receipt Date: 20131109
  Transmission Date: 20140711
  Serious: No
  Sender: FDA-Public Use
  Company Number: US-SANOFI-AVENTIS-2013SA094405

PATIENT
  Age: 65 Year
  Sex: Male

DRUGS (1)
  1. ALLEGRA-D [Suspect]
     Route: 048
     Dates: start: 20130914, end: 20130916

REACTIONS (4)
  - Local swelling [Not Recovered/Not Resolved]
  - Feeling abnormal [Not Recovered/Not Resolved]
  - Irritability [Not Recovered/Not Resolved]
  - Sleep disorder [Not Recovered/Not Resolved]
